FAERS Safety Report 13857445 (Version 3)
Quarter: 2018Q2

REPORT INFORMATION
  Report Type: Spontaneous
  Country: AR (occurrence: AR)
  Receive Date: 20170810
  Receipt Date: 20180522
  Transmission Date: 20180711
  Serious: Yes (Hospitalization, Other)
  Sender: FDA-Public Use
  Company Number: AR-AMGEN-ARGSP2017121138

PATIENT
  Age: 69 Year
  Sex: Female

DRUGS (2)
  1. ENBREL [Suspect]
     Active Substance: ETANERCEPT
     Dosage: 50 UNK, UNK
     Route: 065
  2. ENBREL [Suspect]
     Active Substance: ETANERCEPT
     Indication: PSORIATIC ARTHROPATHY
     Dosage: 50 MG, WEEKLY
     Route: 065
     Dates: start: 20011008, end: 201706

REACTIONS (11)
  - Gait inability [Recovering/Resolving]
  - Wrist fracture [Recovering/Resolving]
  - Fall [Recovering/Resolving]
  - Malaise [Recovering/Resolving]
  - Stress [Recovering/Resolving]
  - Blood pressure increased [Recovering/Resolving]
  - Injury [Recovering/Resolving]
  - Bronchospasm [Recovering/Resolving]
  - Wrist deformity [Recovered/Resolved]
  - Influenza [Recovering/Resolving]
  - Weight decreased [Recovered/Resolved]

NARRATIVE: CASE EVENT DATE: 2011
